FAERS Safety Report 8615987-0 (Version None)
Quarter: 2012Q3

REPORT INFORMATION
  Report Type: 
  Country: None (occurrence: None)
  Receive Date: 20120815
  Receipt Date: 20120815
  Transmission Date: 20120928
  Serious: Yes (Hospitalization)
  Sender: FDA-Public Use
  Company Number: None

PATIENT
  Age: 18 Year
  Sex: Male
  Weight: 39.4629 kg

DRUGS (1)
  1. MEROPENEM [Suspect]
     Indication: RESPIRATORY DISTRESS
     Dosage: 1000MG Q8H IV BOLUS
     Route: 040
     Dates: start: 20120508, end: 20120511

REACTIONS (4)
  - CONVULSION [None]
  - DRUG LEVEL BELOW THERAPEUTIC [None]
  - DRUG INTERACTION [None]
  - RESPIRATORY DISTRESS [None]
